FAERS Safety Report 6028074-5 (Version None)
Quarter: 2009Q1

REPORT INFORMATION
  Report Type: 
  Country: None (occurrence: None)
  Receive Date: 20090102
  Receipt Date: 20081215
  Transmission Date: 20090719
  Serious: Yes (Other)
  Sender: FDA-Public Use
  Company Number: KV200801158

PATIENT
  Age: 77 Year
  Sex: Female

DRUGS (1)
  1. ISOSORBIDE MONONITRATE [Suspect]
     Indication: ATRIAL FIBRILLATION
     Dosage: 30 MG, QD, ORAL
     Route: 048

REACTIONS (5)
  - DIZZINESS [None]
  - ELECTROCARDIOGRAM ABNORMAL [None]
  - HEART RATE DECREASED [None]
  - HYPOTENSION [None]
  - PRODUCT QUALITY ISSUE [None]
